FAERS Safety Report 21889150 (Version 1)
Quarter: 2023Q1

REPORT INFORMATION
  Report Type: Spontaneous
  Country: US (occurrence: None)
  Receive Date: 20230119
  Receipt Date: 20230119
  Transmission Date: 20230417
  Serious: Yes (Hospitalization)
  Sender: FDA-Public Use
  Company Number: None

PATIENT
  Sex: Female
  Weight: 63.5 kg

DRUGS (3)
  1. FLUOROURACIL [Suspect]
     Active Substance: FLUOROURACIL
     Dates: end: 20221230
  2. LEUCOVORIN CALCIUM [Suspect]
     Active Substance: LEUCOVORIN CALCIUM
     Dates: end: 20221230
  3. ELOXATIN [Suspect]
     Active Substance: OXALIPLATIN
     Dates: end: 20221230

REACTIONS (3)
  - Abdominal pain [None]
  - Food intolerance [None]
  - Colostomy [None]

NARRATIVE: CASE EVENT DATE: 20230110
